APPROVED DRUG PRODUCT: MEDROXYPROGESTERONE ACETATE
Active Ingredient: MEDROXYPROGESTERONE ACETATE
Strength: 5MG
Dosage Form/Route: TABLET;ORAL
Application: A040159 | Product #002 | TE Code: AB
Applicant: BARR LABORATORIES INC
Approved: Aug 9, 1996 | RLD: No | RS: No | Type: RX